FAERS Safety Report 4369056-9 (Version None)
Quarter: 2004Q2

REPORT INFORMATION
  Report Type: 
  Country: None (occurrence: None)
  Receive Date: 20040527
  Receipt Date: 22040511
  Transmission Date: 20050107
  Serious: Yes (Other)
  Sender: FDA-Public Use
  Company Number: US_0404102222

PATIENT
  Age: 75 Year
  Sex: Female

DRUGS (2)
  1. EVISTA [Suspect]
     Dates: start: 20030901, end: 20031101
  2. FOSAMAX [Concomitant]

REACTIONS (1)
  - NO ADVERSE EFFECT [None]
